FAERS Safety Report 10664507 (Version 1)
Quarter: 2014Q4

REPORT INFORMATION
  Report Type: Spontaneous
  Country: US (occurrence: US)
  Receive Date: 20141219
  Receipt Date: 20141219
  Transmission Date: 20150529
  Serious: No
  Sender: FDA-Public Use
  Company Number: US-009507513-1412USA008372

PATIENT
  Age: 25 Year
  Sex: Female
  Weight: 45.35 kg

DRUGS (1)
  1. NEXPLANON [Suspect]
     Active Substance: ETONOGESTREL
     Indication: CONTRACEPTION
     Dosage: UNK, 1 SINGLE ROD
     Route: 059
     Dates: start: 20140109

REACTIONS (3)
  - Cyst [Not Recovered/Not Resolved]
  - Haemorrhage [Not Recovered/Not Resolved]
  - Hypoaesthesia [Not Recovered/Not Resolved]

NARRATIVE: CASE EVENT DATE: 2014
